FAERS Safety Report 5716585-9 (Version None)
Quarter: 2008Q2

REPORT INFORMATION
  Report Type: 
  Country: None (occurrence: None)
  Receive Date: 20080424
  Receipt Date: 20080411
  Transmission Date: 20081010
  Serious: Yes (Hospitalization)
  Sender: FDA-Public Use
  Company Number: CA-ELI_LILLY_AND_COMPANY-CA200804003554

PATIENT
  Sex: Male

DRUGS (6)
  1. FORTEO [Suspect]
     Indication: OSTEOPOROSIS
     Dosage: 20 UG, DAILY (1/D)
     Route: 058
     Dates: start: 20071111, end: 20080407
  2. CALCIUM WITH VITAMIN D /00944201/ [Concomitant]
  3. SALMO SALAR OIL [Concomitant]
  4. COD-LIVER OIL [Concomitant]
  5. VITAMIN D [Concomitant]
  6. ESTER-C [Concomitant]

REACTIONS (3)
  - FALL [None]
  - PAIN [None]
  - UPPER LIMB FRACTURE [None]
